FAERS Safety Report 7272985-X (Version None)
Quarter: 2011Q1

REPORT INFORMATION
  Report Type: 
  Country: None (occurrence: None)
  Receive Date: 20110203
  Receipt Date: 20110128
  Transmission Date: 20110831
  Serious: Yes (Disabling)
  Sender: FDA-Public Use
  Company Number: A0910215A

PATIENT
  Sex: Male

DRUGS (1)
  1. LOVAZA [Suspect]
     Route: 048

REACTIONS (3)
  - IRRITABLE BOWEL SYNDROME [None]
  - DIARRHOEA [None]
  - DISABILITY [None]
